FAERS Safety Report 8319124-1 (Version None)
Quarter: 2012Q2

REPORT INFORMATION
  Report Type: 
  Country: None (occurrence: None)
  Receive Date: 20120427
  Receipt Date: 20120420
  Transmission Date: 20120825
  Serious: Yes (Disabling)
  Sender: FDA-Public Use
  Company Number: AU-MERCK-1204USA02921

PATIENT
  Age: 21 Year
  Sex: Male
  Weight: 60 kg

DRUGS (2)
  1. PROSCAR [Suspect]
     Route: 048
     Dates: start: 20040101, end: 20120201
  2. VENLAFAXINE HYDROCHLORIDE [Suspect]
     Route: 065

REACTIONS (7)
  - VISION BLURRED [None]
  - FEELING ABNORMAL [None]
  - FATIGUE [None]
  - ANXIETY [None]
  - MEMORY IMPAIRMENT [None]
  - DEPRESSION [None]
  - OFF LABEL USE [None]
